FAERS Safety Report 13591678 (Version 1)
Quarter: 2017Q2

REPORT INFORMATION
  Report Type: Spontaneous
  Country: US (occurrence: US)
  Receive Date: 20170530
  Receipt Date: 20170530
  Transmission Date: 20170830
  Serious: Yes (Hospitalization, Disabling, Other)
  Sender: FDA-Public Use
  Company Number: None

PATIENT
  Age: 33 Year
  Sex: Male
  Weight: 70 kg

DRUGS (4)
  1. FISH OIL [Concomitant]
     Active Substance: FISH OIL
  2. OMNISCAN [Suspect]
     Active Substance: GADODIAMIDE
     Indication: PUPILS UNEQUAL
     Dosage: INTRAVENOUS (NOT OTHERWISE SPECIFIED)
     Route: 042
  3. CHELATION THERAPY [Concomitant]
  4. MULTIVITAMIN [Concomitant]
     Active Substance: VITAMINS

REACTIONS (6)
  - Paraesthesia [None]
  - Flushing [None]
  - Muscle spasms [None]
  - Cognitive disorder [None]
  - Toxicity to various agents [None]
  - Memory impairment [None]

NARRATIVE: CASE EVENT DATE: 20150423
